FAERS Safety Report 8366405-1 (Version None)
Quarter: 2012Q2

REPORT INFORMATION
  Report Type: 
  Country: None (occurrence: None)
  Receive Date: 20120517
  Receipt Date: 20120511
  Transmission Date: 20120825
  Serious: Yes (Other)
  Sender: FDA-Public Use
  Company Number: FR-PFIZER INC-2012115032

PATIENT
  Age: 78 Year
  Sex: Female

DRUGS (6)
  1. AROMASIN [Suspect]
     Indication: BREAST CANCER
     Dosage: 25 MG, UNK
     Route: 048
     Dates: start: 20120214, end: 20120301
  2. BISOPROLOL [Concomitant]
  3. RAMIPRIL [Concomitant]
  4. AMLODIPINE BESYLATE [Concomitant]
  5. ASPIRIN [Concomitant]
     Dosage: 75 UNK, UNK
  6. CRESTOR [Concomitant]

REACTIONS (3)
  - EOSINOPHILIA [None]
  - RASH MACULO-PAPULAR [None]
  - PYREXIA [None]
